FAERS Safety Report 22629185 (Version 1)
Quarter: 2023Q2

REPORT INFORMATION
  Report Type: Spontaneous
  Country: US (occurrence: None)
  Receive Date: 20230619
  Receipt Date: 20230619
  Transmission Date: 20230721
  Serious: No
  Sender: FDA-Public Use
  Company Number: None

PATIENT
  Sex: Female

DRUGS (11)
  1. IBRANCE [Suspect]
     Active Substance: PALBOCICLIB
     Indication: Breast cancer female
     Dosage: OTHER QUANTITY : 1T;?FREQUENCY : DAILY;?
     Route: 048
  2. ANASTROZOLE [Concomitant]
     Active Substance: ANASTROZOLE
  3. AZITHROMYCIN [Concomitant]
     Active Substance: AZITHROMYCIN
  4. DOXEPIN [Concomitant]
     Active Substance: DOXEPIN
  5. FLONASE [Concomitant]
     Active Substance: FLUTICASONE PROPIONATE
  6. LISINOPRIL [Concomitant]
     Active Substance: LISINOPRIL
  7. PANTROPRAZOLE [Concomitant]
  8. PAROXETINE [Concomitant]
     Active Substance: PAROXETINE
  9. PAXIL [Concomitant]
     Active Substance: PAROXETINE HYDROCHLORIDE
  10. PROTONIX [Concomitant]
     Active Substance: PANTOPRAZOLE SODIUM
  11. SIMETHICONE (DIMETHICONE) [Concomitant]
     Active Substance: DIMETHICONE

REACTIONS (1)
  - White blood cell count decreased [None]
